FAERS Safety Report 15075288 (Version 1)
Quarter: 2018Q2

REPORT INFORMATION
  Report Type: Spontaneous
  Country: US (occurrence: US)
  Receive Date: 20180627
  Receipt Date: 20180627
  Transmission Date: 20180711
  Serious: No
  Sender: FDA-Public Use
  Company Number: US-SAOL THERAPEUTICS-2018SAO00221

PATIENT
  Age: 69 Year
  Sex: Male

DRUGS (3)
  1. BACLOFEN. [Suspect]
     Active Substance: BACLOFEN
     Indication: MUSCLE SPASTICITY
     Dosage: 330 ?G, \DAY
     Route: 037
     Dates: end: 20180206
  2. BACLOFEN. [Suspect]
     Active Substance: BACLOFEN
     Dosage: 330 ?G, \DAY
     Route: 037
     Dates: start: 20180209
  3. BACLOFEN. [Suspect]
     Active Substance: BACLOFEN
     Indication: MUSCLE SPASTICITY
     Dosage: 165 ?G, \DAY
     Route: 037
     Dates: start: 20180206, end: 20180209

REACTIONS (2)
  - Overdose [Recovered/Resolved]
  - Dizziness [Recovered/Resolved]

NARRATIVE: CASE EVENT DATE: 201802
